FAERS Safety Report 8372434-4 (Version None)
Quarter: 2012Q2

REPORT INFORMATION
  Report Type: 
  Country: None (occurrence: None)
  Receive Date: 20120521
  Receipt Date: 20120514
  Transmission Date: 20120825
  Serious: Yes (Hospitalization)
  Sender: FDA-Public Use
  Company Number: US-ABBOTT-12P-163-0935027-00

PATIENT
  Sex: Female
  Weight: 42.676 kg

DRUGS (4)
  1. HUMIRA [Suspect]
     Indication: CROHN'S DISEASE
     Route: 058
     Dates: start: 20120201, end: 20120501
  2. PREDNISONE [Concomitant]
     Indication: CROHN'S DISEASE
  3. HUMIRA [Suspect]
     Route: 058
     Dates: start: 20120501
  4. IRON [Concomitant]
     Indication: MINERAL SUPPLEMENTATION

REACTIONS (4)
  - VOMITING [None]
  - CROHN'S DISEASE [None]
  - ABDOMINAL DISTENSION [None]
  - ABDOMINAL PAIN [None]
